FAERS Safety Report 23781106 (Version 1)
Quarter: 2024Q2

REPORT INFORMATION
  Report Type: Spontaneous
  Country: FR (occurrence: None)
  Receive Date: 20240425
  Receipt Date: 20240425
  Transmission Date: 20240716
  Serious: Yes (Other)
  Sender: FDA-Public Use
  Company Number: 2024A096514

PATIENT
  Sex: Female

DRUGS (2)
  1. TAGRISSO [Suspect]
     Active Substance: OSIMERTINIB
     Indication: Non-small cell lung cancer metastatic
     Route: 048
  2. TARCEVA [Concomitant]
     Active Substance: ERLOTINIB HYDROCHLORIDE

REACTIONS (2)
  - Malignant neoplasm progression [Unknown]
  - Metastases to central nervous system [Unknown]
